FAERS Safety Report 7409970-0 (Version None)
Quarter: 2011Q2

REPORT INFORMATION
  Report Type: 
  Country: None (occurrence: None)
  Receive Date: 20110404
  Receipt Date: 20110330
  Transmission Date: 20111010
  Serious: Yes (Death, Other)
  Sender: FDA-Public Use
  Company Number: 8049988

PATIENT
  Sex: Female
  Weight: 64 kg

DRUGS (10)
  1. VITAMIN B-12 [Concomitant]
  2. CERTOLIZUMAB PEGOL [Suspect]
     Indication: RHEUMATOID ARTHRITIS
     Dosage: (200 MG 1X/2 WEEKS SUBCUTANEOUS)
     Route: 058
     Dates: start: 20090416, end: 20090806
  3. OSCAL [Concomitant]
  4. METFORMIN [Concomitant]
  5. LEVOXYL [Concomitant]
  6. CENTRUM SILVER /01292501/ [Concomitant]
  7. BENADRYL [Concomitant]
  8. FOLIC ACID [Concomitant]
  9. ACETAMINOPHEN [Concomitant]
  10. ASPIRIN [Concomitant]

REACTIONS (4)
  - DIVERTICULUM INTESTINAL [None]
  - SMALL CELL LUNG CANCER METASTATIC [None]
  - METASTASES TO LIVER [None]
  - INFLUENZA [None]
